FAERS Safety Report 15781573 (Version 2)
Quarter: 2024Q4

REPORT INFORMATION
  Report Type: Spontaneous
  Country: US (occurrence: US)
  Receive Date: 20190102
  Receipt Date: 20241111
  Transmission Date: 20250115
  Serious: Yes (Life-Threatening, Hospitalization, Other)
  Sender: GLENMARK
  Company Number: US-GLENMARK PHARMACEUTICALS-2018GMK038826

PATIENT

DRUGS (8)
  1. LEVOFLOXACIN [Suspect]
     Active Substance: LEVOFLOXACIN
     Indication: Prophylaxis
     Dosage: UNK
     Route: 065
  2. FLUCONAZOLE [Suspect]
     Active Substance: FLUCONAZOLE
     Indication: Prophylaxis
     Dosage: UNK
     Route: 065
  3. CYCLOPHOSPHAMIDE [Concomitant]
     Active Substance: CYCLOPHOSPHAMIDE
     Indication: Primary mediastinal large B-cell lymphoma
     Dosage: UNK, (CYCLICAL)
     Route: 065
  4. VINCRISTINE [Concomitant]
     Active Substance: VINCRISTINE
     Indication: Primary mediastinal large B-cell lymphoma
     Dosage: UNK, (CYCLICAL)
     Route: 065
  5. ETOPOSIDE PHOSPHATE [Concomitant]
     Active Substance: ETOPOSIDE PHOSPHATE
     Indication: Primary mediastinal large B-cell lymphoma
     Dosage: UNK, (CYCLICAL)
     Route: 065
  6. DOXORUBICIN [Concomitant]
     Active Substance: DOXORUBICIN
     Indication: Primary mediastinal large B-cell lymphoma
     Dosage: UNK,(CYCLICAL)
     Route: 065
  7. PREDNISONE [Concomitant]
     Active Substance: PREDNISONE
     Indication: Primary mediastinal large B-cell lymphoma
     Dosage: UNK,(CYCLICAL)
     Route: 065
  8. RITUXIMAB [Concomitant]
     Active Substance: RITUXIMAB
     Indication: Primary mediastinal large B-cell lymphoma
     Dosage: UNK,(CYCLICAL)
     Route: 065

REACTIONS (5)
  - Hypomagnesaemia [Recovered/Resolved]
  - Hypokalaemia [Recovered/Resolved]
  - Syncope [Recovered/Resolved]
  - Electrocardiogram QT prolonged [Recovered/Resolved]
  - Torsade de pointes [Recovered/Resolved]
